FAERS Safety Report 6287452-X (Version None)
Quarter: 2009Q3

REPORT INFORMATION
  Report Type: 
  Country: None (occurrence: None)
  Receive Date: 20090727
  Receipt Date: 20090720
  Transmission Date: 20100115
  Serious: Yes (Hospitalization)
  Sender: FDA-Public Use
  Company Number: 330445

PATIENT
  Age: 37 Year
  Sex: Female

DRUGS (3)
  1. EPIRUBICIN [Suspect]
     Indication: LIPOSARCOMA
     Dosage: UNKNOWN
  2. IFOSFAMIDE [Suspect]
     Indication: LIPOSARCOMA
     Dosage: UNKNOWN
  3. THERAPEUTIC RADIOPHARMACEUTICALS [Concomitant]

REACTIONS (2)
  - BONE MARROW NECROSIS [None]
  - MYELODYSPLASTIC SYNDROME [None]
